FAERS Safety Report 6028585-2 (Version None)
Quarter: 2008Q4

REPORT INFORMATION
  Report Type: 
  Country: None (occurrence: None)
  Receive Date: 20081231
  Receipt Date: 20081231
  Transmission Date: 20090506
  Serious: Yes (Hospitalization)
  Sender: FDA-Public Use
  Company Number: None

PATIENT
  Age: 72 Year
  Sex: Male
  Weight: 81 kg

DRUGS (2)
  1. ERTAPENEM [Suspect]
     Indication: ABSCESS
     Dosage: 1 GM EVERY DAY IV
     Route: 042
     Dates: start: 20081021, end: 20081028
  2. ERTAPENEM [Suspect]
     Indication: INFECTION
     Dosage: 1 GM EVERY DAY IV
     Route: 042
     Dates: start: 20081021, end: 20081028

REACTIONS (5)
  - ARTHRALGIA [None]
  - CHRONIC INFLAMMATORY DEMYELINATING POLYRADICULONEUROPATHY [None]
  - MUSCULAR WEAKNESS [None]
  - OEDEMA PERIPHERAL [None]
  - SERUM SICKNESS [None]
